FAERS Safety Report 22347021 (Version 2)
Quarter: 2023Q2

REPORT INFORMATION
  Report Type: Report from Study
  Country: US (occurrence: US)
  Receive Date: 20230520
  Receipt Date: 20230525
  Transmission Date: 20230722
  Serious: No
  Sender: FDA-Public Use
  Company Number: US-002147023-NVSC2023US114406

PATIENT
  Sex: Female
  Weight: 117.93 kg

DRUGS (2)
  1. BETAMETHASONE [Suspect]
     Active Substance: BETAMETHASONE
     Indication: Psoriasis
     Dosage: UNK
     Route: 065
  2. CLOBETASOL [Suspect]
     Active Substance: CLOBETASOL
     Indication: Psoriasis
     Dosage: UNK
     Route: 065

REACTIONS (6)
  - Skin plaque [Unknown]
  - Haemangioma of skin [Unknown]
  - Fibrous histiocytoma [Unknown]
  - Skin hyperpigmentation [Unknown]
  - Psoriasis [Unknown]
  - Treatment failure [Unknown]
